FAERS Safety Report 9194187 (Version 1)
Quarter: 2013Q1

REPORT INFORMATION
  Report Type: Spontaneous
  Country: US (occurrence: US)
  Receive Date: 20130327
  Receipt Date: 20130327
  Transmission Date: 20140127
  Serious: No
  Sender: FDA-Public Use
  Company Number: US-ASTRAZENECA-2013SE16061

PATIENT
  Age: 74 Year
  Sex: Female
  Weight: 68.5 kg

DRUGS (6)
  1. RAMIPRIL [Suspect]
     Indication: BLOOD PRESSURE ABNORMAL
     Route: 048
     Dates: start: 200907
  2. CRESTOR [Suspect]
     Route: 048
     Dates: start: 200907
  3. BABY ASPIRIN [Concomitant]
     Indication: VASCULAR GRAFT
     Dosage: DAILY
     Route: 048
     Dates: start: 200906
  4. CARVEDILOL [Concomitant]
     Indication: CARDIOVASCULAR EVENT PROPHYLAXIS
     Route: 048
  5. CLOPIDOGREL [Concomitant]
     Indication: VASCULAR GRAFT
     Route: 048
     Dates: start: 200907
  6. VITAMINS - UNSPECIFIED [Concomitant]
     Route: 048

REACTIONS (5)
  - Impaired fasting glucose [Unknown]
  - Body height decreased [Unknown]
  - Blood pressure decreased [Unknown]
  - Glycosylated haemoglobin increased [Unknown]
  - Dizziness [Unknown]
